FAERS Safety Report 17877463 (Version 4)
Quarter: 2020Q2

REPORT INFORMATION
  Report Type: Report from Study
  Country: CA (occurrence: CA)
  Receive Date: 20200609
  Receipt Date: 20200615
  Transmission Date: 20200714
  Serious: Yes (Death, Hospitalization, Other)
  Sender: FDA-Public Use
  Company Number: CA-HLS-202000059

PATIENT
  Age: 71 Year
  Sex: Male
  Weight: 54 kg

DRUGS (2)
  1. CLOZARIL [Suspect]
     Active Substance: CLOZAPINE
     Dosage: 25MG AND GRADUALLY INCREASED
     Route: 048
     Dates: end: 20200508
  2. CLOZARIL [Suspect]
     Active Substance: CLOZAPINE
     Dosage: 150MG AT BEDTIME
     Route: 048
     Dates: start: 19950517, end: 20190219

REACTIONS (33)
  - Abdominal infection [Unknown]
  - Confusional state [Recovered/Resolved]
  - Hypertonia [Recovered/Resolved]
  - Hypertonia [Recovered/Resolved]
  - Lethargy [Unknown]
  - Salivary hypersecretion [Unknown]
  - Subileus [Unknown]
  - Pneumonia aspiration [Unknown]
  - Death [Fatal]
  - Confusional state [Recovered/Resolved]
  - Dry mouth [Unknown]
  - Salivary hypersecretion [Recovered/Resolved]
  - Hyperhidrosis [Recovered/Resolved]
  - Tachycardia [Recovered/Resolved]
  - Asthenia [Recovered/Resolved]
  - Vision blurred [Recovered/Resolved]
  - Gastrointestinal obstruction [Unknown]
  - Headache [Recovered/Resolved]
  - Hypotension [Recovered/Resolved]
  - Pneumonia [Recovered/Resolved]
  - Asthenia [Unknown]
  - Diarrhoea [Recovered/Resolved]
  - Enuresis [Recovered/Resolved]
  - Hypotension [Recovered/Resolved]
  - Weight decreased [Unknown]
  - Dry mouth [Recovered/Resolved]
  - Pneumonia [Recovered/Resolved]
  - Salivary hypersecretion [Unknown]
  - Constipation [Unknown]
  - Somnolence [Recovered/Resolved]
  - Cough [Unknown]
  - Enuresis [Recovered/Resolved]
  - Hypertonia [Recovered/Resolved]

NARRATIVE: CASE EVENT DATE: 20180709
